FAERS Safety Report 7972822-1 (Version None)
Quarter: 2011Q4

REPORT INFORMATION
  Report Type: 
  Country: None (occurrence: None)
  Receive Date: 20111213
  Receipt Date: 20111202
  Transmission Date: 20120403
  Serious: Yes (Other)
  Sender: FDA-Public Use
  Company Number: GB-ROCHE-1018872

PATIENT
  Age: 40 Year
  Sex: Male

DRUGS (2)
  1. ZOPICLONE [Suspect]
     Indication: PRODUCT USED FOR UNKNOWN INDICATION
  2. PEGINTERFERON ALFA-2A [Suspect]
     Indication: HEPATITIS C

REACTIONS (5)
  - AGORAPHOBIA [None]
  - PANIC ATTACK [None]
  - OVERDOSE [None]
  - AGGRESSION [None]
  - ANXIETY [None]
